FAERS Safety Report 8018553-3 (Version None)
Quarter: 2012Q1

REPORT INFORMATION
  Report Type: 
  Country: None (occurrence: None)
  Receive Date: 20120103
  Receipt Date: 20111219
  Transmission Date: 20120608
  Serious: Yes (Other)
  Sender: FDA-Public Use
  Company Number: US-ENDO PHARMACEUTICALS INC.-OPER20110344

PATIENT
  Sex: Female

DRUGS (2)
  1. OPANA ER [Suspect]
     Route: 048
     Dates: start: 20111201
  2. OPANA ER [Suspect]
     Indication: PRODUCT USED FOR UNKNOWN INDICATION
     Route: 048
     Dates: start: 20110729, end: 20111201

REACTIONS (4)
  - ROAD TRAFFIC ACCIDENT [None]
  - OVERDOSE [None]
  - PAIN [None]
  - INTENTIONAL DRUG MISUSE [None]
